FAERS Safety Report 14347852 (Version 1)
Quarter: 2018Q1

REPORT INFORMATION
  Report Type: Spontaneous
  Country: SE (occurrence: SE)
  Receive Date: 20180103
  Receipt Date: 20180103
  Transmission Date: 20180509
  Serious: Yes (Other)
  Sender: FDA-Public Use
  Company Number: SE-TEVA-2017-SE-840133

PATIENT
  Sex: Male

DRUGS (1)
  1. ALLOPURINOL TEVA [Suspect]
     Active Substance: ALLOPURINOL
     Indication: GOUT
     Route: 048

REACTIONS (1)
  - Oral disorder [Not Recovered/Not Resolved]
